FAERS Safety Report 9217386 (Version 2)
Quarter: 2013Q2

REPORT INFORMATION
  Report Type: Spontaneous
  Country: US (occurrence: None)
  Receive Date: 20130404
  Receipt Date: 20130502
  Transmission Date: 20140414
  Serious: Yes (Hospitalization)
  Sender: FDA-Public Use
  Company Number: QSC-2013-0088

PATIENT
  Age: 74 Year
  Sex: Male

DRUGS (13)
  1. H.P. ACTHAR GEL [Suspect]
     Indication: NEPHROTIC SYNDROME
     Dosage: 80 UNITS, BIW, SUBCUTANEOUS
     Route: 058
     Dates: start: 20121012, end: 201302
  2. BUMEX (BUMETANIDE) [Concomitant]
  3. POTASSIUM CHLORIDE (POTASSIUM CHLORIDE) [Concomitant]
  4. VITAMIN D (ERGOCALCIFEROL) [Concomitant]
  5. ASPIRIN LOW (ACETYLSALICYLIC ACID) [Concomitant]
  6. COREG (CARVEDILOL) [Concomitant]
  7. CALCITRIOL (CALCITRIOL) [Concomitant]
  8. FISH OIL (FISH OIL) [Concomitant]
  9. ALDACTONE (SPIRONOLACTONE) [Concomitant]
  10. DILTIAZEM [Concomitant]
  11. FLOMAX (MORNIFLUMATE) [Concomitant]
  12. HYDRALAZINE (HYDRALAZINE) [Concomitant]
  13. MAGNESIUM (MAGNESIUM SULFATE) [Concomitant]

REACTIONS (4)
  - Myopathy [None]
  - Deep vein thrombosis [None]
  - Asthenia [None]
  - Blood glucose increased [None]
